FAERS Safety Report 9013304 (Version 1)
Quarter: 2013Q1

REPORT INFORMATION
  Report Type: Spontaneous
  Country: US (occurrence: None)
  Receive Date: 20130107
  Receipt Date: 20130107
  Transmission Date: 20140127
  Serious: Yes (Other)
  Sender: FDA-Public Use
  Company Number: None

PATIENT
  Age: 30 Year
  Sex: Female
  Weight: 85.28 kg

DRUGS (4)
  1. VIIBRYD [Suspect]
     Dosage: 20MG ONCE DAILY PO
     Route: 048
     Dates: start: 20120628, end: 20121029
  2. B12 [Concomitant]
  3. PROPRANOLOL [Concomitant]
  4. VALTREX [Concomitant]

REACTIONS (2)
  - Sleep paralysis [None]
  - Nightmare [None]
